FAERS Safety Report 8800388 (Version 1)
Quarter: 2012Q4

REPORT INFORMATION
  Report Type: 
  Country: US (occurrence: US)
  Receive Date: 20120921
  Receipt Date: 20120921
  Transmission Date: 20130627
  Serious: No
  Sender: FDA-Public Use
  Company Number: US-009507513-1208USA007639

PATIENT
  Sex: Female

DRUGS (2)
  1. PEGINTRON [Suspect]
     Indication: HEPATITIS C
     Dosage: UNK
     Dates: start: 20120613
  2. REBETOL [Suspect]
     Indication: HEPATITIS C
     Dosage: UNK
     Dates: start: 20120613

REACTIONS (6)
  - Injection site rash [Unknown]
  - Pain in extremity [Unknown]
  - Hypophagia [Unknown]
  - Sweat gland disorder [Unknown]
  - Weight decreased [Unknown]
  - Headache [Unknown]
